FAERS Safety Report 18558353 (Version 1)
Quarter: 2020Q4

REPORT INFORMATION
  Report Type: Report from Study
  Country: FR (occurrence: FR)
  Receive Date: 20201130
  Receipt Date: 20201130
  Transmission Date: 20210114
  Serious: Yes (Hospitalization, Other)
  Sender: FDA-Public Use
  Company Number: FR-ASTELLAS-2020US041220

PATIENT
  Age: 57 Year
  Sex: Female

DRUGS (6)
  1. TACROLIMUS. [Suspect]
     Active Substance: TACROLIMUS
     Indication: RENAL TRANSPLANT
     Dosage: 0.5 MG + 3 MG + 5 MG (8.5 MG), ONCE DAILY (IN THE MORNING AT 7.A.M WHEN FASTING)
     Route: 048
     Dates: start: 20080718
  2. CELLCEPT [Concomitant]
     Active Substance: MYCOPHENOLATE MOFETIL\MYCOPHENOLATE MOFETIL HYDROCHLORIDE
     Indication: TRANSPLANT
     Dosage: 500 MG, EVERY 2 DAYS
     Route: 065
  3. TACROLIMUS. [Suspect]
     Active Substance: TACROLIMUS
     Indication: CHRONIC KIDNEY DISEASE
  4. RAMIPRIL. [Concomitant]
     Active Substance: RAMIPRIL
     Indication: HYPERTENSION
     Dosage: 5 MG, ONCE DAILY, ACCORDING TO BLOOD PRESSURE VALUES (CURRENTLY STABILIZED)
     Route: 065
     Dates: start: 2006
  5. UVEDOSE [Concomitant]
     Active Substance: CHOLECALCIFEROL
     Indication: VITAMIN D ABNORMAL
     Route: 065
  6. TEMERIT [Concomitant]
     Active Substance: NEBIVOLOL
     Indication: HYPERTENSION
     Dosage: 5 MG, ONCE DAILY, DISCONTINUOUSLY (ACCORDING TO HTA VALUE)
     Route: 065

REACTIONS (15)
  - Weight increased [Recovered/Resolved with Sequelae]
  - Paraesthesia [Unknown]
  - Vein disorder [Recovered/Resolved]
  - Affective disorder [Unknown]
  - Mobility decreased [Not Recovered/Not Resolved]
  - Pain [Unknown]
  - Wrong technique in product usage process [Unknown]
  - Glucose tolerance impaired [Not Recovered/Not Resolved]
  - Peripheral swelling [Unknown]
  - Pain in extremity [Unknown]
  - Diarrhoea [Unknown]
  - Pyrexia [Unknown]
  - Blood pressure increased [Unknown]
  - Accident at work [Recovered/Resolved with Sequelae]
  - Heart rate increased [Unknown]

NARRATIVE: CASE EVENT DATE: 200807
